FAERS Safety Report 8611182-X (Version None)
Quarter: 2012Q3

REPORT INFORMATION
  Report Type: 
  Country: None (occurrence: None)
  Receive Date: 20120822
  Receipt Date: 20120807
  Transmission Date: 20120928
  Serious: No
  Sender: FDA-Public Use
  Company Number: US-BAYER-2012-081390

PATIENT
  Age: 80 Year
  Sex: Female
  Weight: 62.132 kg

DRUGS (1)
  1. ALEVE (CAPLET) [Suspect]
     Indication: ARTHRITIS
     Dosage: 2 DF, ONCE
     Route: 048
     Dates: end: 20120701

REACTIONS (3)
  - BACK PAIN [None]
  - HYPERSOMNIA [None]
  - PAIN IN EXTREMITY [None]
